FAERS Safety Report 25363784 (Version 7)
Quarter: 2025Q4

REPORT INFORMATION
  Report Type: Spontaneous
  Country: JP (occurrence: JP)
  Receive Date: 20250527
  Receipt Date: 20251224
  Transmission Date: 20260119
  Serious: No
  Sender: PFIZER
  Company Number: JP-PFIZER INC-PV202500060863

PATIENT
  Sex: Female

DRUGS (2)
  1. ENBREL [Suspect]
     Active Substance: ETANERCEPT
     Dosage: 1 ML, WEEKLY
     Route: 058
  2. ENBREL [Suspect]
     Active Substance: ETANERCEPT
     Dosage: 1 ML, ONCE EVERY 2 WEEKS
     Route: 058

REACTIONS (4)
  - Multiple use of single-use product [Unknown]
  - Device delivery system issue [Unknown]
  - Injection site pain [Unknown]
  - Intentional product misuse [Unknown]

NARRATIVE: CASE EVENT DATE: 20250521
